FAERS Safety Report 9480921 (Version 1)
Quarter: 2013Q3

REPORT INFORMATION
  Report Type: Spontaneous
  Country: US (occurrence: US)
  Receive Date: 20130828
  Receipt Date: 20130828
  Transmission Date: 20140515
  Serious: Yes (Hospitalization)
  Sender: FDA-Public Use
  Company Number: US-AMGEN-KDL136596

PATIENT
  Age: 52 Year
  Sex: Female

DRUGS (2)
  1. ENBREL [Suspect]
     Indication: RHEUMATOID ARTHRITIS
     Dosage: 25 MG, 2 TIMES/WK
     Route: 058
     Dates: start: 20030201
  2. METHOTREXATE [Concomitant]
     Dosage: UNK UNK, QD
     Route: 048
     Dates: start: 1990

REACTIONS (12)
  - Juvenile idiopathic arthritis [Recovered/Resolved]
  - Meniere^s disease [Recovered/Resolved]
  - Condition aggravated [Recovered/Resolved]
  - Accidental exposure to product [Unknown]
  - Respiratory tract irritation [Unknown]
  - Throat irritation [Unknown]
  - Dyspnoea [Unknown]
  - Vomiting [Unknown]
  - Dizziness [Unknown]
  - Cough [Unknown]
  - Nausea [Unknown]
  - Lymphadenopathy [Unknown]
